FAERS Safety Report 7068537-7 (Version None)
Quarter: 2010Q4

REPORT INFORMATION
  Report Type: 
  Country: None (occurrence: None)
  Receive Date: 20101027
  Receipt Date: 20101027
  Transmission Date: 20110411
  Serious: Yes (Disabling)
  Sender: FDA-Public Use
  Company Number: None

PATIENT
  Age: 53 Year
  Sex: Female
  Weight: 97.5234 kg

DRUGS (1)
  1. EFFEXOR [Suspect]
     Indication: MENOPAUSE
     Dates: start: 20080203, end: 20101008

REACTIONS (21)
  - ARTHRALGIA [None]
  - DEAFNESS TRANSITORY [None]
  - DIZZINESS [None]
  - DRUG DISPENSING ERROR [None]
  - DYSSTASIA [None]
  - EAR INFECTION [None]
  - FOOD INTOLERANCE [None]
  - HEADACHE [None]
  - HYPERACUSIS [None]
  - IMPAIRED DRIVING ABILITY [None]
  - IMPAIRED WORK ABILITY [None]
  - MOVEMENT DISORDER [None]
  - NAUSEA [None]
  - NERVOUS SYSTEM DISORDER [None]
  - PAIN [None]
  - PARAESTHESIA [None]
  - PHOTOPHOBIA [None]
  - READING DISORDER [None]
  - TINNITUS [None]
  - VISION BLURRED [None]
  - VISUAL ACUITY REDUCED [None]
